FAERS Safety Report 25877072 (Version 3)
Quarter: 2025Q4

REPORT INFORMATION
  Report Type: Spontaneous
  Country: EU (occurrence: EU)
  Receive Date: 20251003
  Receipt Date: 20251016
  Transmission Date: 20260118
  Serious: Yes (Other)
  Sender: TAKEDA
  Company Number: EU-ABBVIE-6459841

PATIENT
  Age: 73 Year
  Sex: Female
  Weight: 80 kg

DRUGS (8)
  1. ENTYVIO [Suspect]
     Active Substance: VEDOLIZUMAB
     Indication: Product used for unknown indication
     Dosage: 108 MILLIGRAM, Q2WEEKS
  2. METHOTREXATE [Suspect]
     Active Substance: METHOTREXATE
     Indication: Product used for unknown indication
     Dosage: UNK
  3. HUMIRA [Suspect]
     Active Substance: ADALIMUMAB
     Indication: Product used for unknown indication
     Dosage: UNK
  4. ENTOCORT [Suspect]
     Active Substance: BUDESONIDE
     Indication: Product used for unknown indication
     Dosage: UNK
  5. MERCAPTOPURINE [Suspect]
     Active Substance: MERCAPTOPURINE
     Indication: Product used for unknown indication
     Dosage: UNK
  6. MERCAPTOPURINE [Suspect]
     Active Substance: MERCAPTOPURINE
     Dosage: UNK
  7. SKYRIZI [Concomitant]
     Active Substance: RISANKIZUMAB-RZAA
     Indication: Product used for unknown indication
     Dosage: UNK
  8. PREDNISOLONE [Concomitant]
     Active Substance: PREDNISOLONE
     Indication: Product used for unknown indication
     Dosage: UNK

REACTIONS (21)
  - Recurrent cancer [Unknown]
  - Rash [Unknown]
  - Headache [Unknown]
  - Iron deficiency [Unknown]
  - Nausea [Unknown]
  - Gastrointestinal disorder [Unknown]
  - Diarrhoea [Recovered/Resolved]
  - Crohn^s disease [Unknown]
  - Sleep disorder [Unknown]
  - Fatigue [Unknown]
  - Skin lesion [Unknown]
  - Urinary tract infection [Unknown]
  - Dehydration [Unknown]
  - Gastrointestinal wall thickening [Unknown]
  - Gastrointestinal oedema [Unknown]
  - Diverticulitis [Unknown]
  - Abdominal pain [Unknown]
  - Pneumoperitoneum [Unknown]
  - Hydrosalpinx [Unknown]
  - Tubo-ovarian abscess [Unknown]
  - C-reactive protein abnormal [Unknown]

NARRATIVE: CASE EVENT DATE: 20210101
